FAERS Safety Report 6414879-5 (Version None)
Quarter: 2009Q4

REPORT INFORMATION
  Report Type: 
  Country: None (occurrence: None)
  Receive Date: 20091026
  Receipt Date: 20091026
  Transmission Date: 20100525
  Serious: No
  Sender: FDA-Public Use
  Company Number: None

PATIENT
  Age: 55 Year
  Sex: Female
  Weight: 68.0396 kg

DRUGS (8)
  1. SERTRALINE HCL [Suspect]
     Indication: ANXIETY
     Dosage: 100 MGS 1 TABLET PER DAY PO
     Route: 048
     Dates: start: 20080701, end: 20091023
  2. SERTRALINE HCL [Suspect]
     Indication: DEPRESSION
     Dosage: 100 MGS 1 TABLET PER DAY PO
     Route: 048
     Dates: start: 20080701, end: 20091023
  3. SERTRALINE HCL [Suspect]
     Indication: GENERALISED ANXIETY DISORDER
     Dosage: 100 MGS 1 TABLET PER DAY PO
     Route: 048
     Dates: start: 20080701, end: 20091023
  4. SERTRALINE HCL [Suspect]
     Indication: OBSESSIVE-COMPULSIVE DISORDER
     Dosage: 100 MGS 1 TABLET PER DAY PO
     Route: 048
     Dates: start: 20080701, end: 20091023
  5. SERTRALINE HCL [Suspect]
     Indication: ANXIETY
     Dosage: 100 MGS 1 TABLET PER DAY PO
     Route: 048
  6. SERTRALINE HCL [Suspect]
     Indication: DEPRESSION
     Dosage: 100 MGS 1 TABLET PER DAY PO
     Route: 048
  7. SERTRALINE HCL [Suspect]
     Indication: GENERALISED ANXIETY DISORDER
     Dosage: 100 MGS 1 TABLET PER DAY PO
     Route: 048
  8. SERTRALINE HCL [Suspect]
     Indication: OBSESSIVE-COMPULSIVE DISORDER
     Dosage: 100 MGS 1 TABLET PER DAY PO
     Route: 048

REACTIONS (10)
  - ANXIETY [None]
  - BLADDER DISORDER [None]
  - FEAR [None]
  - FEELING OF DESPAIR [None]
  - GASTRIC DISORDER [None]
  - GASTROINTESTINAL DISORDER [None]
  - HEADACHE [None]
  - HOT FLUSH [None]
  - NERVOUSNESS [None]
  - PRODUCT SUBSTITUTION ISSUE [None]
